FAERS Safety Report 7387626-0 (Version None)
Quarter: 2011Q1

REPORT INFORMATION
  Report Type: 
  Country: None (occurrence: None)
  Receive Date: 20110331
  Receipt Date: 20110318
  Transmission Date: 20110831
  Serious: Yes (Hospitalization, Other)
  Sender: FDA-Public Use
  Company Number: US-CELGENEUS-163-21880-11021520

PATIENT
  Sex: Male

DRUGS (6)
  1. STEROID [Concomitant]
     Indication: MULTIPLE MYELOMA
     Route: 065
  2. VALIUM [Concomitant]
     Dosage: 5 MILLIGRAM
     Route: 065
  3. REVLIMID [Suspect]
     Indication: MULTIPLE MYELOMA
     Dosage: 25 MILLIGRAM
     Route: 048
     Dates: start: 20100825, end: 20101020
  4. NARDIL [Concomitant]
     Route: 065
  5. ASPIRIN [Concomitant]
     Dosage: 81 MILLIGRAM
     Route: 065
  6. ZOMETA [Concomitant]
     Route: 065

REACTIONS (6)
  - INTRACARDIAC THROMBUS [None]
  - FATIGUE [None]
  - PULMONARY EMBOLISM [None]
  - ASTHENIA [None]
  - DEEP VEIN THROMBOSIS [None]
  - NEUROPATHY PERIPHERAL [None]
